FAERS Safety Report 16171398 (Version 5)
Quarter: 2019Q3

REPORT INFORMATION
  Report Type: Spontaneous
  Country: US (occurrence: US)
  Receive Date: 20190408
  Receipt Date: 20190812
  Transmission Date: 20191004
  Serious: Yes (Other)
  Sender: FDA-Public Use
  Company Number: US-PFIZER INC-2019142346

PATIENT
  Age: 55 Year
  Sex: Male
  Weight: 85 kg

DRUGS (15)
  1. ATAZANAVIR. [Interacting]
     Active Substance: ATAZANAVIR
     Indication: HIV INFECTION
     Dosage: 300 MG, DAILY
     Route: 048
  2. LIDOCAINE HCL [Suspect]
     Active Substance: LIDOCAINE HYDROCHLORIDE
     Indication: PAIN MANAGEMENT
     Dosage: 1 MG/KG, UNK (LOW-DOSE, CONTINUOUS IV LIDOCAINE INFUSION, 1 MG/KG/H, RESTARTED)
     Route: 042
  3. CANDESARTAN. [Concomitant]
     Active Substance: CANDESARTAN
     Dosage: 16 MG, DAILY
     Route: 048
  4. VANCOMYCIN [Concomitant]
     Active Substance: VANCOMYCIN
     Dosage: 1.25 G, 2X/DAY (Q12H)
     Route: 042
  5. LIDOCAINE HCL [Interacting]
     Active Substance: LIDOCAINE HYDROCHLORIDE
     Dosage: 2 MG/KG, UNK (INFUSION,2 MG/KG/H FOR 2 HOURS, TOTAL DOSE 460 MG)
     Route: 042
  6. ASPIRIN. [Concomitant]
     Active Substance: ASPIRIN
     Dosage: 325 MG, DAILY
     Route: 048
  7. FENTANYL. [Concomitant]
     Active Substance: FENTANYL
     Indication: ANALGESIC THERAPY
     Dosage: 30 UG, UNK (EVERY 10 MINUTES)
     Route: 042
  8. LIDOCAINE HCL [Interacting]
     Active Substance: LIDOCAINE HYDROCHLORIDE
     Dosage: 120 MG, UNK
     Route: 040
  9. ABACAVIR + LAMIVUDIN [Concomitant]
     Active Substance: ABACAVIR\LAMIVUDINE
     Indication: HIV INFECTION
     Dosage: 1 DF, DAILY (600-300 MG)
     Route: 048
  10. METOPROLOL SUCCINATE. [Concomitant]
     Active Substance: METOPROLOL SUCCINATE
     Dosage: 25 MG, DAILY
     Route: 048
  11. HEPARIN [Concomitant]
     Active Substance: HEPARIN SODIUM
     Dosage: 5000 IU, 3X/DAY (Q8H)
     Route: 058
  12. FENTANYL. [Concomitant]
     Active Substance: FENTANYL
     Dosage: 1140 UG, UNK (PREVIOUS 24 HOURS)
     Route: 042
  13. ROSUVASTATIN. [Concomitant]
     Active Substance: ROSUVASTATIN
     Dosage: 40 MG, UNK (QPM)
     Route: 048
  14. RITONAVIR. [Interacting]
     Active Substance: RITONAVIR
     Indication: HIV INFECTION
     Dosage: 100 MG, DAILY
     Route: 048
  15. CIPROFLOXACIN. [Concomitant]
     Active Substance: CIPROFLOXACIN
     Dosage: 400 MG, 2X/DAY (Q12H)
     Route: 042

REACTIONS (3)
  - Cardiotoxicity [Unknown]
  - Neurotoxicity [Unknown]
  - Drug interaction [Unknown]
